FAERS Safety Report 18441965 (Version 1)
Quarter: 2020Q4

REPORT INFORMATION
  Report Type: Spontaneous
  Country: US (occurrence: US)
  Receive Date: 20201029
  Receipt Date: 20201029
  Transmission Date: 20210114
  Serious: Yes (Other)
  Sender: FDA-Public Use
  Company Number: US-TEVA-2020-US-1842352

PATIENT
  Age: 19 Year
  Sex: Female

DRUGS (1)
  1. LAMOTRIGINE TEVA [Suspect]
     Active Substance: LAMOTRIGINE
     Dosage: 500 MILLIGRAM DAILY; EXTENDED RELEASE TABLET
     Route: 048
     Dates: start: 20201015

REACTIONS (2)
  - Heart rate increased [Recovered/Resolved]
  - Seizure [Recovered/Resolved]

NARRATIVE: CASE EVENT DATE: 20201017
